FAERS Safety Report 17821109 (Version 1)
Quarter: 2020Q2

REPORT INFORMATION
  Report Type: Spontaneous
  Country: US (occurrence: US)
  Receive Date: 20200525
  Receipt Date: 20200525
  Transmission Date: 20200714
  Serious: Yes (Other)
  Sender: FDA-Public Use
  Company Number: US-NOVOPROD-729326

PATIENT
  Age: 61 Year
  Sex: Female

DRUGS (1)
  1. NOVOLIN 70/30 [Suspect]
     Active Substance: INSULIN HUMAN
     Indication: DIABETES MELLITUS
     Dosage: 26 IU, BID
     Route: 058

REACTIONS (4)
  - Diabetic retinopathy [Not Recovered/Not Resolved]
  - Glaucoma [Recovered/Resolved]
  - Blood glucose fluctuation [Not Recovered/Not Resolved]
  - Cataract [Recovered/Resolved]

NARRATIVE: CASE EVENT DATE: 201509
